FAERS Safety Report 4534748-5 (Version None)
Quarter: 2004Q4

REPORT INFORMATION
  Report Type: 
  Country: None (occurrence: None)
  Receive Date: 20041222
  Receipt Date: 20040116
  Transmission Date: 20050328
  Serious: No
  Sender: FDA-Public Use
  Company Number: US-BRISTOL-MYERS SQUIBB COMPANY-12481933

PATIENT
  Age: 70 Year
  Sex: Female
  Weight: 88 kg

DRUGS (7)
  1. PRAVACHOL [Suspect]
     Indication: BLOOD CHOLESTEROL INCREASED
     Dosage: PRIOR TO APR-2003, PATIENT WAS ON 20 MG DAILY.
     Route: 048
  2. HYDROCHLOROTHIAZIDE [Concomitant]
  3. MULTI-VITAMIN [Concomitant]
  4. CALCIUM [Concomitant]
  5. IBUPROFEN [Concomitant]
  6. GLUCOSAMINE [Concomitant]
  7. TYLENOL (CAPLET) [Concomitant]

REACTIONS (2)
  - ARTHRITIS [None]
  - MENISCUS LESION [None]
